FAERS Safety Report 17737191 (Version 1)
Quarter: 2020Q2

REPORT INFORMATION
  Report Type: Spontaneous
  Country: DE (occurrence: DE)
  Receive Date: 20200502
  Receipt Date: 20200502
  Transmission Date: 20200714
  Serious: Yes (Other)
  Sender: FDA-Public Use
  Company Number: DE-TEVA-2020-DE-1228775

PATIENT
  Sex: Male

DRUGS (1)
  1. RAMIPRIL-RATIOPHARM 2.5MG [Suspect]
     Active Substance: RAMIPRIL

REACTIONS (1)
  - Skin cancer [Unknown]
